FAERS Safety Report 7312966-0 (Version None)
Quarter: 2011Q1

REPORT INFORMATION
  Report Type: 
  Country: None (occurrence: None)
  Receive Date: 20110224
  Receipt Date: 20110214
  Transmission Date: 20110831
  Serious: Yes (Other)
  Sender: FDA-Public Use
  Company Number: US-ELI_LILLY_AND_COMPANY-US201005000616

PATIENT
  Sex: Male

DRUGS (17)
  1. BYETTA [Suspect]
     Dosage: 10 UG, 2/D
     Route: 058
     Dates: start: 20060426, end: 20081101
  2. GLYBURIDE [Concomitant]
     Dosage: 10 MG, EACH MORNING
  3. ZETIA [Concomitant]
     Dosage: 10 MG, DAILY (1/D)
     Route: 048
  4. ANTIBIOTICS [Concomitant]
  5. GLYBURIDE [Concomitant]
     Dosage: 5 MG, EACH EVENING
  6. LASIX /USA/ [Concomitant]
     Dosage: 40 MG, DAILY (1/D)
     Route: 048
  7. INSULIN [Concomitant]
  8. CALCIUM [Concomitant]
  9. DIURETICS [Concomitant]
  10. ACCUPRIL [Concomitant]
     Dosage: 40 MG, DAILY (1/D)
     Route: 048
  11. AVANDIA [Concomitant]
     Dosage: 8 MG, DAILY (1/D)
     Route: 048
  12. ATACAND [Concomitant]
     Dosage: 32 MG, DAILY (1/D)
     Route: 048
  13. BYETTA [Suspect]
     Indication: TYPE 2 DIABETES MELLITUS
     Dosage: 5 UG, 2/D
     Route: 058
     Dates: start: 20060321, end: 20060425
  14. ASPIRIN /USA/ [Concomitant]
     Dosage: 81 MG, EACH MORNING
     Route: 048
  15. CLONIDINE [Concomitant]
     Dosage: 0.9 MG, 2/D
     Route: 048
  16. TOPROL-XL [Concomitant]
     Dosage: 200 MG, DAILY (1/D)
     Route: 048
  17. VERAPAMIL HYDROCHLORIDE [Concomitant]
     Dosage: 240 MG, 2/D
     Route: 048

REACTIONS (4)
  - OFF LABEL USE [None]
  - WEIGHT DECREASED [None]
  - PANCREATITIS [None]
  - RENAL FAILURE [None]
